FAERS Safety Report 24374953 (Version 4)
Quarter: 2024Q4

REPORT INFORMATION
  Report Type: Spontaneous
  Country: US (occurrence: US)
  Receive Date: 20240927
  Receipt Date: 20241114
  Transmission Date: 20250114
  Serious: Yes (Other)
  Sender: MERCK
  Company Number: US-009507513-2409USA008237

PATIENT
  Sex: Male
  Weight: 112.5 kg

DRUGS (26)
  1. WINREVAIR [Suspect]
     Active Substance: SOTATERCEPT-CSRK
     Indication: Product used for unknown indication
     Dosage: STARTING DOSE: 0.3 MG/KG, Q3W, 0.7 ML
     Route: 065
     Dates: start: 2024
  2. WINREVAIR [Suspect]
     Active Substance: SOTATERCEPT-CSRK
     Dosage: BEEN ON A TARGET DOSE SINCE THE SECOND DOSE OF SOTATERCEPT (WINREVAIR) AND HAD MAINTAINED IT IN EVER
     Route: 065
     Dates: start: 2024
  3. WINREVAIR [Suspect]
     Active Substance: SOTATERCEPT-CSRK
     Dosage: BACK TO STARTING DOSE OF 0.3 MG/KG, VOLUME: 0.7 ML, EVERY 21 DAYS, DOSE DECREASED
     Route: 065
     Dates: start: 202410
  4. REMODULIN [Suspect]
     Active Substance: TREPROSTINIL
     Indication: Pulmonary arterial hypertension
     Dosage: 0.050 UG/KG (SELF-FILL CASSETTE WITH 3 ML, RATE OF 38 MCL/HOUR), CONTINUING, SUBCUTANEOUS USE
     Route: 058
     Dates: start: 20231102
  5. DOCUSATE SODIUM [Concomitant]
     Active Substance: DOCUSATE SODIUM
  6. PREDNISONE [Concomitant]
     Active Substance: PREDNISONE
  7. COLCHICINE [Concomitant]
     Active Substance: COLCHICINE
  8. SODIUM CHLORIDE [Concomitant]
     Active Substance: SODIUM CHLORIDE
  9. PRADAXA [Concomitant]
     Active Substance: DABIGATRAN ETEXILATE MESYLATE
  10. GABAPENTIN [Concomitant]
     Active Substance: GABAPENTIN
  11. SILDENAFIL [Concomitant]
     Active Substance: SILDENAFIL
  12. ABIRATERONE ACETATE [Concomitant]
     Active Substance: ABIRATERONE ACETATE
  13. OPSUMIT [Concomitant]
     Active Substance: MACITENTAN
  14. VITAMINS [Concomitant]
     Active Substance: VITAMINS
  15. CALCIUM [Concomitant]
     Active Substance: CALCIUM
  16. OXYGEN [Concomitant]
     Active Substance: OXYGEN
  17. FUROSEMIDE [Concomitant]
     Active Substance: FUROSEMIDE
  18. VITAMIN D3 [Concomitant]
     Active Substance: CHOLECALCIFEROL
  19. POTASSIUM CHLORIDE [Concomitant]
     Active Substance: POTASSIUM CHLORIDE
  20. KETAMINE HYDROCHLORIDE [Concomitant]
     Active Substance: KETAMINE HYDROCHLORIDE
     Dosage: UNK
  21. LECITHIN [GLYCINE MAX EXTRACT] [Concomitant]
     Dosage: UNK
  22. CLONIDINE HYDROCHLORIDE [Concomitant]
     Active Substance: CLONIDINE HYDROCHLORIDE
     Dosage: UNK
  23. KETOPROFEN [Concomitant]
     Active Substance: KETOPROFEN
     Dosage: UNK
  24. LIDOCAINE HYDROCHLORIDE [Concomitant]
     Active Substance: LIDOCAINE HYDROCHLORIDE
     Dosage: UNK
  25. AMITRIPTYLINE HYDROCHLORIDE [Concomitant]
     Active Substance: AMITRIPTYLINE HYDROCHLORIDE
     Dosage: UNK
  26. POLOXAMER [Concomitant]
     Active Substance: POLOXAMER
     Dosage: UNK

REACTIONS (1)
  - Platelet count decreased [Recovered/Resolved]

NARRATIVE: CASE EVENT DATE: 20240101
